FAERS Safety Report 6904429-9 (Version None)
Quarter: 2010Q3

REPORT INFORMATION
  Report Type: 
  Country: None (occurrence: None)
  Receive Date: 20100804
  Receipt Date: 20090522
  Transmission Date: 20110219
  Serious: No
  Sender: FDA-Public Use
  Company Number: US-PFIZER INC-2009218722

PATIENT
  Sex: Male

DRUGS (12)
  1. LYRICA [Suspect]
     Indication: CONVULSION
     Dosage: 50 MG, 2X/DAY
     Route: 048
     Dates: start: 20090522
  2. PLAVIX [Concomitant]
  3. METFORMIN HCL [Concomitant]
  4. CRESTOR [Concomitant]
  5. TRICOR [Concomitant]
  6. ZOLPIDEM TARTRATE [Concomitant]
  7. FLEXERIL [Concomitant]
  8. AVODART [Concomitant]
  9. ATACAND [Concomitant]
  10. MECLOZINE HYDROCHLORIDE [Concomitant]
  11. LOMOTIL [Concomitant]
  12. PREVACID [Concomitant]

REACTIONS (6)
  - CONFUSIONAL STATE [None]
  - FATIGUE [None]
  - FEELING ABNORMAL [None]
  - LETHARGY [None]
  - SOMNOLENCE [None]
  - WEIGHT INCREASED [None]
